FAERS Safety Report 5123259-4 (Version None)
Quarter: 2006Q4

REPORT INFORMATION
  Report Type: 
  Country: None (occurrence: None)
  Receive Date: 20061009
  Receipt Date: 20061005
  Transmission Date: 20070319
  Serious: Yes (Other)
  Sender: FDA-Public Use
  Company Number: US-GLAXOSMITHKLINE-A0622681A

PATIENT
  Age: 16 Year
  Sex: Female

DRUGS (1)
  1. PAXIL [Suspect]
     Indication: ANXIETY
     Dosage: 10MG PER DAY
     Route: 048
     Dates: start: 20010201, end: 20021101

REACTIONS (3)
  - ANXIETY [None]
  - DEPRESSION [None]
  - SUICIDE ATTEMPT [None]
